FAERS Safety Report 11678037 (Version 1)
Quarter: 2015Q4

REPORT INFORMATION
  Report Type: Spontaneous
  Country: US (occurrence: US)
  Receive Date: 20151028
  Receipt Date: 20151028
  Transmission Date: 20160304
  Serious: No
  Sender: FDA-Public Use
  Company Number: US-009507513-1510USA006124

PATIENT
  Sex: Male

DRUGS (1)
  1. KEYTRUDA [Suspect]
     Active Substance: PEMBROLIZUMAB
     Dosage: 100 MG, UNK
     Route: 065

REACTIONS (4)
  - Colitis [Unknown]
  - Adrenal disorder [Unknown]
  - Abdominal pain [Unknown]
  - Diarrhoea [Unknown]
